FAERS Safety Report 9688327 (Version 1)
Quarter: 2013Q4

REPORT INFORMATION
  Report Type: Spontaneous
  Country: US (occurrence: US)
  Receive Date: 20131114
  Receipt Date: 20131114
  Transmission Date: 20140711
  Serious: Yes (Other)
  Sender: FDA-Public Use
  Company Number: PHEH2013US023678

PATIENT
  Sex: Male

DRUGS (5)
  1. AFINITOR [Suspect]
     Indication: ASTROCYTOMA
     Dosage: 10 MG, QD
     Dates: end: 201307
  2. AFINITOR [Suspect]
     Dosage: 10 MG, QD
     Dates: start: 20130923
  3. KEPPRA [Concomitant]
     Indication: CONVULSION
     Dosage: 1250 MG, UNK
  4. BACTRIM [Concomitant]
     Indication: PROPHYLAXIS
  5. PREDNISONE [Concomitant]

REACTIONS (2)
  - Nasal septum deviation [Unknown]
  - Sinusitis fungal [Not Recovered/Not Resolved]
